FAERS Safety Report 6163038-2 (Version None)
Quarter: 2009Q2

REPORT INFORMATION
  Report Type: 
  Country: None (occurrence: None)
  Receive Date: 20090421
  Receipt Date: 20090414
  Transmission Date: 20091009
  Serious: Yes (Other)
  Sender: FDA-Public Use
  Company Number: US-JNJCH-2009009732

PATIENT
  Age: 8 Year
  Sex: Female

DRUGS (1)
  1. VISINE EYE DROPS [Suspect]
     Indication: OCULAR HYPERAEMIA
     Dosage: TEXT:UNSPECIFIED ONCE
     Route: 047
     Dates: start: 20090404, end: 20090404

REACTIONS (6)
  - CHEST DISCOMFORT [None]
  - DISTURBANCE IN ATTENTION [None]
  - GAIT DISTURBANCE [None]
  - POISONING [None]
  - PRURITUS [None]
  - SPEECH DISORDER [None]
